FAERS Safety Report 24532022 (Version 3)
Quarter: 2024Q4

REPORT INFORMATION
  Report Type: Report from Study
  Country: US (occurrence: US)
  Receive Date: 20241022
  Receipt Date: 20241223
  Transmission Date: 20250115
  Serious: Yes (Other)
  Sender: ROCHE
  Company Number: US-ROCHE-10000079739

PATIENT
  Age: 57 Year
  Sex: Female

DRUGS (16)
  1. XOLAIR [Suspect]
     Active Substance: OMALIZUMAB
     Indication: Idiopathic urticaria
     Route: 058
     Dates: start: 202307
  2. XOLAIR [Suspect]
     Active Substance: OMALIZUMAB
     Indication: Chronic spontaneous urticaria
     Dosage: INJECT 2ML (300MG) SUBCUTANEOUSLY EVERY 28 DAY(S)
     Route: 058
  3. ARIPIPRAZOLE [Concomitant]
     Active Substance: ARIPIPRAZOLE
  4. CETIRIZINE HYDROCHLORIDE [Concomitant]
     Active Substance: CETIRIZINE HYDROCHLORIDE
  5. CHOLECALCIFEROL [Concomitant]
     Active Substance: CHOLECALCIFEROL
  6. CROMOLYN SODIUM [Concomitant]
     Active Substance: CROMOLYN SODIUM
  7. EPINEPHRINE [Concomitant]
     Active Substance: EPINEPHRINE
  8. FLUTICASONE [Concomitant]
     Active Substance: FLUTICASONE
  9. INDOMETHACIN [Concomitant]
     Active Substance: INDOMETHACIN
  10. KETORACIN [KETOROLAC] [Concomitant]
  11. LAMOTRIGINE [Concomitant]
     Active Substance: LAMOTRIGINE
  12. LEFLU [Concomitant]
  13. LEVOTHYROXINE [Concomitant]
     Active Substance: LEVOTHYROXINE
  14. LORAZEPAM [Concomitant]
     Active Substance: LORAZEPAM
  15. FAMOTIDINE [Concomitant]
     Active Substance: FAMOTIDINE
  16. OMEPRAZOLE [Concomitant]
     Active Substance: OMEPRAZOLE

REACTIONS (24)
  - Fall [Unknown]
  - Hand fracture [Not Recovered/Not Resolved]
  - Wrist fracture [Not Recovered/Not Resolved]
  - Migraine [Not Recovered/Not Resolved]
  - Fibromyalgia [Unknown]
  - Hypothyroidism [Unknown]
  - Hyperlipidaemia [Unknown]
  - Major depression [Unknown]
  - Amino acid level abnormal [Unknown]
  - Nephrolithiasis [Unknown]
  - Hereditary alpha tryptasaemia [Unknown]
  - Migraine with aura [Unknown]
  - Nephrolithiasis [Unknown]
  - Occipital neuralgia [Unknown]
  - Pain [Unknown]
  - Achlorhydria [Unknown]
  - Stress urinary incontinence [Unknown]
  - Rotator cuff syndrome [Unknown]
  - Intervertebral disc disorder [Unknown]
  - Anaphylactic reaction [Unknown]
  - Gastrooesophageal reflux disease [Unknown]
  - Seronegative arthritis [Unknown]
  - Myelopathy [Unknown]
  - Ureterolithiasis [Unknown]
